APPROVED DRUG PRODUCT: THEOLIXIR
Active Ingredient: THEOPHYLLINE
Strength: 80MG/15ML
Dosage Form/Route: ELIXIR;ORAL
Application: A084559 | Product #001
Applicant: PANRAY CORP SUB ORMONT DRUG AND CHEMICAL CO INC
Approved: Approved Prior to Jan 1, 1982 | RLD: No | RS: No | Type: DISCN